FAERS Safety Report 5020403-4 (Version None)
Quarter: 2006Q2

REPORT INFORMATION
  Report Type: 
  Country: None (occurrence: None)
  Receive Date: 20060602
  Receipt Date: 20060522
  Transmission Date: 20061013
  Serious: Yes (Hospitalization)
  Sender: FDA-Public Use
  Company Number: 2006S1000134

PATIENT
  Age: 76 Year
  Sex: Male

DRUGS (1)
  1. ACITRETIN [Suspect]
     Indication: PITYRIASIS RUBRA PILARIS

REACTIONS (1)
  - ATRIAL FIBRILLATION [None]
